FAERS Safety Report 7052243-9 (Version None)
Quarter: 2010Q4

REPORT INFORMATION
  Report Type: 
  Country: None (occurrence: None)
  Receive Date: 20101019
  Receipt Date: 20101012
  Transmission Date: 20110411
  Serious: Yes (Hospitalization)
  Sender: FDA-Public Use
  Company Number: NL-B.I. PHARMACEUTICALS,INC./RIDGEFIELD-2010-DE-05712BY

PATIENT
  Sex: Male

DRUGS (5)
  1. TELMISARTAN [Suspect]
     Indication: HYPERTENSION
     Dosage: 40 MG
     Route: 048
     Dates: start: 20100915, end: 20100927
  2. MICARDIS [Concomitant]
  3. IPRAMOL [Concomitant]
  4. FOSTER [Concomitant]
  5. SPIRIVA [Concomitant]

REACTIONS (6)
  - ASCITES [None]
  - COUGH [None]
  - DRY MOUTH [None]
  - DYSPNOEA [None]
  - OEDEMA PERIPHERAL [None]
  - THERAPEUTIC RESPONSE UNEXPECTED WITH DRUG SUBSTITUTION [None]
